FAERS Safety Report 13144700 (Version 1)
Quarter: 2017Q1

REPORT INFORMATION
  Report Type: Report from Study
  Country: None (occurrence: DK)
  Receive Date: 20170124
  Receipt Date: 20170124
  Transmission Date: 20170428
  Serious: Yes (Death, Hospitalization)
  Sender: FDA-Public Use
  Company Number: DK-ABBVIE-16P-044-1628704-00

PATIENT
  Age: 70 Year
  Sex: Male
  Weight: 69 kg

DRUGS (54)
  1. GA101 [Suspect]
     Active Substance: OBINUTUZUMAB
     Indication: CHRONIC LYMPHOCYTIC LEUKAEMIA
     Dosage: MOST RECENT DOSE ON ON 28/APR/2016 AT 12:00 HOURS; PRIOR TO SECOND EPISODE ON 11/MAY/2016
     Route: 042
     Dates: start: 20160414
  2. IBUPROFEN. [Concomitant]
     Active Substance: IBUPROFEN
     Indication: PAIN IN EXTREMITY
     Route: 048
  3. NATRIUMCHLORID [Concomitant]
     Route: 042
     Dates: start: 20160409, end: 20160409
  4. KALIUMCHLORID [Concomitant]
     Route: 048
     Dates: start: 20160524
  5. CLEMASTIN [Concomitant]
     Active Substance: CLEMASTINE
     Route: 048
     Dates: start: 20160428, end: 20160428
  6. OMEGA 3 [Concomitant]
     Active Substance: OMEGA-3 FATTY ACIDS
     Indication: VITAMIN SUPPLEMENTATION
     Route: 048
     Dates: start: 20160317
  7. ACETYLSALICYLSYRE [Concomitant]
     Active Substance: ASPIRIN
     Indication: MYOCARDIAL INFARCTION
     Route: 048
  8. AMLODIPIN [Concomitant]
     Active Substance: AMLODIPINE BESYLATE
     Indication: HYPERTENSION
     Route: 048
     Dates: start: 20160408
  9. NATRIUMCHLORID [Concomitant]
     Route: 042
     Dates: start: 20160415, end: 20160415
  10. NATRIUMCHLORID [Concomitant]
     Route: 042
     Dates: start: 20160504, end: 20160504
  11. NATRIUMCHLORID [Concomitant]
     Route: 042
     Dates: start: 20160524
  12. FUROSEMID [Concomitant]
     Active Substance: FUROSEMIDE
     Route: 042
     Dates: start: 20160421, end: 20160423
  13. FUROSEMID [Concomitant]
     Active Substance: FUROSEMIDE
     Route: 042
     Dates: start: 20160416, end: 20160418
  14. KALIUMCHLORID [Concomitant]
     Indication: HYPOKALAEMIA
     Route: 048
     Dates: start: 20160410, end: 20160410
  15. CLEMASTIN [Concomitant]
     Active Substance: CLEMASTINE
     Route: 048
     Dates: start: 20160415, end: 20160415
  16. ERYTHROCYTE TRANSFUSIONS [Concomitant]
     Route: 042
     Dates: start: 20160418, end: 20160418
  17. NATRIUMHYDROGENCARBONAT [Concomitant]
     Active Substance: SODIUM BICARBONATE
     Route: 048
     Dates: start: 20160524
  18. PARACETAMOL [Concomitant]
     Active Substance: ACETAMINOPHEN
     Route: 048
     Dates: start: 20160428, end: 20160428
  19. PARACETAMOL [Concomitant]
     Active Substance: ACETAMINOPHEN
     Route: 048
     Dates: start: 20160511, end: 20160511
  20. PETHIDIN [Concomitant]
     Active Substance: MEPERIDINE
     Indication: INFUSION RELATED REACTION
     Route: 042
     Dates: start: 20160414, end: 20160414
  21. MICONAZOL [Concomitant]
     Active Substance: MICONAZOLE NITRATE
     Indication: ANAL FUNGAL INFECTION
     Dates: start: 20160504, end: 20160518
  22. ERYTHROCYTE TRANSFUSIONS [Concomitant]
     Route: 042
     Dates: start: 20160412, end: 20160412
  23. ERYTHROCYTE TRANSFUSIONS [Concomitant]
     Route: 042
     Dates: start: 20160414, end: 20160414
  24. NATRIUMCHLORID [Concomitant]
     Route: 042
     Dates: start: 20160413, end: 20160413
  25. NATRIUMCHLORID [Concomitant]
     Route: 042
     Dates: start: 20160414, end: 20160414
  26. PARACETAMOL [Concomitant]
     Active Substance: ACETAMINOPHEN
     Indication: PROPHYLAXIS
     Route: 048
     Dates: start: 20160414, end: 20160414
  27. METHYLPREDNISOLON [Concomitant]
     Active Substance: METHYLPREDNISOLONE
     Route: 042
     Dates: start: 20160511, end: 20160511
  28. NATRIUMHYDROGENCARBONAT [Concomitant]
     Active Substance: SODIUM BICARBONATE
     Indication: CONSTIPATION
     Route: 048
     Dates: start: 20160524
  29. MACROGOL 3350 [Concomitant]
     Active Substance: POLYETHYLENE GLYCOL 3350
     Indication: CONSTIPATION
     Route: 048
     Dates: start: 20160524
  30. TRANDOLAPRIL. [Concomitant]
     Active Substance: TRANDOLAPRIL
     Indication: HYPERTENSION
     Route: 048
     Dates: start: 20160408
  31. NATRIUMCHLORID [Concomitant]
     Indication: HYPONATRAEMIA
     Route: 042
     Dates: start: 20160408, end: 20160408
  32. PARACETAMOL [Concomitant]
     Active Substance: ACETAMINOPHEN
     Route: 048
     Dates: start: 20160421, end: 20160421
  33. CLEMASTIN [Concomitant]
     Active Substance: CLEMASTINE
     Route: 048
     Dates: start: 20160511, end: 20160511
  34. METHYLPREDNISOLON [Concomitant]
     Active Substance: METHYLPREDNISOLONE
     Indication: PROPHYLAXIS
     Route: 042
     Dates: start: 20160414, end: 20160414
  35. METHYLPREDNISOLON [Concomitant]
     Active Substance: METHYLPREDNISOLONE
     Route: 042
     Dates: start: 20160415, end: 20160415
  36. METHYLPREDNISOLON [Concomitant]
     Active Substance: METHYLPREDNISOLONE
     Route: 042
     Dates: start: 20160428, end: 20160428
  37. NYSTATIN. [Concomitant]
     Active Substance: NYSTATIN
     Indication: ORAL FUNGAL INFECTION
     Route: 048
     Dates: start: 20160504
  38. ERYTHROCYTE TRANSFUSIONS [Concomitant]
     Indication: HAEMOGLOBIN DECREASED
     Route: 042
     Dates: start: 20160410, end: 20160410
  39. ERYTHROCYTE TRANSFUSIONS [Concomitant]
     Route: 042
     Dates: start: 20160513, end: 20160513
  40. ROSUVASTATIN. [Concomitant]
     Active Substance: ROSUVASTATIN
     Indication: HYPERCHOLESTEROLAEMIA
     Route: 048
     Dates: start: 20160409
  41. ALLOPURINOL. [Concomitant]
     Active Substance: ALLOPURINOL
     Indication: PRODUCT USED FOR UNKNOWN INDICATION
     Route: 048
     Dates: start: 20160404, end: 20160409
  42. ALLOPURINOL. [Concomitant]
     Active Substance: ALLOPURINOL
     Route: 048
     Dates: start: 20160413
  43. ESCITALOPRAM [Concomitant]
     Active Substance: ESCITALOPRAM OXALATE
     Indication: DEPRESSION
     Route: 048
     Dates: start: 20160330, end: 20160503
  44. ESCITALOPRAM [Concomitant]
     Active Substance: ESCITALOPRAM OXALATE
     Route: 048
     Dates: start: 20160504
  45. FUROSEMID [Concomitant]
     Active Substance: FUROSEMIDE
     Indication: OEDEMA PERIPHERAL
     Route: 042
     Dates: start: 20160408, end: 20160414
  46. PARACETAMOL [Concomitant]
     Active Substance: ACETAMINOPHEN
     Route: 048
     Dates: start: 20160415, end: 20160415
  47. CLEMASTIN [Concomitant]
     Active Substance: CLEMASTINE
     Route: 048
     Dates: start: 20160421, end: 20160421
  48. VENETOCLAX [Suspect]
     Active Substance: VENETOCLAX
     Indication: CHRONIC LYMPHOCYTIC LEUKAEMIA
     Dosage: MOST RECENT DOSE ON 04/MAY/2016 11:30 HOURS; PRIOR TO 2ND EPISODE ON 23/MAY/2016
     Route: 048
     Dates: start: 20160504
  49. FUROSEMID [Concomitant]
     Active Substance: FUROSEMIDE
     Route: 042
     Dates: start: 20160424, end: 20160428
  50. DIPYRIDAMOL [Concomitant]
     Indication: CEREBROVASCULAR ACCIDENT
     Route: 048
  51. CLEMASTIN [Concomitant]
     Active Substance: CLEMASTINE
     Indication: PROPHYLAXIS
     Route: 048
     Dates: start: 20160414, end: 20160414
  52. METHYLPREDNISOLON [Concomitant]
     Active Substance: METHYLPREDNISOLONE
     Route: 042
     Dates: start: 20160421, end: 20160421
  53. BENDROFLUMETHIAZIDE/KALIUM CHLORID [Concomitant]
     Indication: OEDEMA PERIPHERAL
     Route: 048
     Dates: start: 20160421
  54. SULFAMETHOXAZOLE W/TRIMETHOPRIM [Concomitant]
     Active Substance: SULFAMETHOXAZOLE\TRIMETHOPRIM
     Indication: PRODUCT USED FOR UNKNOWN INDICATION
     Route: 048
     Dates: start: 20160529

REACTIONS (2)
  - Infection [Recovered/Resolved]
  - Infection [Fatal]

NARRATIVE: CASE EVENT DATE: 20160505
